FAERS Safety Report 10682331 (Version 1)
Quarter: 2014Q4

REPORT INFORMATION
  Report Type: Spontaneous
  Country: US (occurrence: None)
  Receive Date: 20141229
  Receipt Date: 20141229
  Transmission Date: 20150529
  Serious: Yes (Disabling, Other)
  Sender: FDA-Public Use
  Company Number: None

PATIENT
  Age: 43 Year
  Sex: Male
  Weight: 108.86 kg

DRUGS (1)
  1. GEODON [Suspect]
     Active Substance: ZIPRASIDONE HYDROCHLORIDE\ZIPRASIDONE MESYLATE
     Indication: SCHIZOPHRENIA
     Dosage: TAKEN BY MOUTH
     Dates: start: 20110301, end: 20140901

REACTIONS (4)
  - Speech disorder [None]
  - Activities of daily living impaired [None]
  - Tardive dyskinesia [None]
  - Dyspnoea [None]

NARRATIVE: CASE EVENT DATE: 20140901
